FAERS Safety Report 7466221-9 (Version None)
Quarter: 2011Q2

REPORT INFORMATION
  Report Type: 
  Country: None (occurrence: None)
  Receive Date: 20110509
  Receipt Date: 20110425
  Transmission Date: 20111010
  Serious: Yes (Other)
  Sender: FDA-Public Use
  Company Number: US-ELI_LILLY_AND_COMPANY-US201104007050

PATIENT
  Age: 58 Year
  Sex: Female

DRUGS (2)
  1. ZYPREXA [Suspect]
     Indication: BIPOLAR DISORDER
     Dosage: UNK
     Dates: start: 20091201, end: 20091201
  2. ZYPREXA [Suspect]
     Dosage: 30 UG, UNK
     Dates: start: 20100101

REACTIONS (4)
  - WEIGHT DECREASED [None]
  - TREMOR [None]
  - OVERDOSE [None]
  - HOSPITALISATION [None]
